FAERS Safety Report 19086373 (Version 1)
Quarter: 2021Q2

REPORT INFORMATION
  Report Type: Other
  Country: GB (occurrence: GB)
  Receive Date: 20210402
  Receipt Date: 20210402
  Transmission Date: 20210717
  Serious: Yes (Death, Hospitalization)
  Sender: FDA-Public Use
  Company Number: GB-FDC LIMITED-2108833

PATIENT
  Sex: Male

DRUGS (8)
  1. CEFOXITIN [Suspect]
     Active Substance: CEFOXITIN SODIUM
     Route: 048
  2. MEROPENEM. [Suspect]
     Active Substance: MEROPENEM
     Route: 042
  3. CLARITHROMYCIN. [Suspect]
     Active Substance: CLARITHROMYCIN
     Route: 048
  4. AZTREONAM. [Suspect]
     Active Substance: AZTREONAM
     Route: 048
  5. CIPROFLOXACIN. [Suspect]
     Active Substance: CIPROFLOXACIN
     Indication: MYCOBACTERIUM ABSCESSUS INFECTION
     Route: 048
  6. AMIKACIN SULFATE. [Suspect]
     Active Substance: AMIKACIN SULFATE
     Route: 048
  7. TIGECYCLINE. [Suspect]
     Active Substance: TIGECYCLINE
     Route: 042
  8. TEICOPLANIN [Suspect]
     Active Substance: TEICOPLANIN
     Route: 042

REACTIONS (2)
  - Nausea [Unknown]
  - Death [Fatal]
